FAERS Safety Report 9344449 (Version 3)
Quarter: 2013Q4

REPORT INFORMATION
  Report Type: Report from Study
  Country: JP (occurrence: FR)
  Receive Date: 20130612
  Receipt Date: 20131015
  Transmission Date: 20140711
  Serious: Yes (Hospitalization)
  Sender: FDA-Public Use
  Company Number: PHHY2013FR059683

PATIENT
  Age: 75 Year
  Sex: Male

DRUGS (3)
  1. TASIGNA [Suspect]
     Indication: CHRONIC MYELOID LEUKAEMIA
     Route: 048
     Dates: start: 20081228, end: 20090301
  2. TASIGNA [Suspect]
     Route: 048
     Dates: start: 200909
  3. NO TREATMENT RECEIVED [Suspect]
     Indication: CHRONIC MYELOID LEUKAEMIA

REACTIONS (2)
  - Lung neoplasm malignant [Not Recovered/Not Resolved]
  - Second primary malignancy [Not Recovered/Not Resolved]
